FAERS Safety Report 22962687 (Version 2)
Quarter: 2023Q4

REPORT INFORMATION
  Report Type: Report from Study
  Country: NZ (occurrence: NZ)
  Receive Date: 20230920
  Receipt Date: 20231012
  Transmission Date: 20240110
  Serious: No
  Sender: FDA-Public Use
  Company Number: NZ-NALPROPION PHARMACEUTICALS INC.-NZ-2023CUR003701

PATIENT
  Age: 27 Year
  Sex: Female
  Weight: 124.2 kg

DRUGS (4)
  1. CONTRAVE [Suspect]
     Active Substance: BUPROPION HYDROCHLORIDE\NALTREXONE HYDROCHLORIDE
     Indication: Weight control
     Dosage: 1 DOSAGE FORM, QD
     Route: 065
     Dates: start: 20230802
  2. CONTRAVE [Suspect]
     Active Substance: BUPROPION HYDROCHLORIDE\NALTREXONE HYDROCHLORIDE
     Dosage: 1 DOSAGE FORM, BID
     Route: 065
  3. CONTRAVE [Suspect]
     Active Substance: BUPROPION HYDROCHLORIDE\NALTREXONE HYDROCHLORIDE
     Dosage: 3 DOSAGE FORM, QD (2 MANE, 1 NOCTE)
     Route: 065
  4. CONTRAVE [Suspect]
     Active Substance: BUPROPION HYDROCHLORIDE\NALTREXONE HYDROCHLORIDE
     Dosage: 2 DOSAGE FORM, BID
     Route: 065
     Dates: start: 20230816, end: 20230828

REACTIONS (5)
  - Constipation [Recovered/Resolved]
  - Salivary hypersecretion [Recovered/Resolved]
  - Drooling [Recovered/Resolved]
  - Vomiting [Recovered/Resolved]
  - Nausea [Recovered/Resolved]

NARRATIVE: CASE EVENT DATE: 20230821
